FAERS Safety Report 5304285-9 (Version None)
Quarter: 2007Q2

REPORT INFORMATION
  Report Type: 
  Country: None (occurrence: None)
  Receive Date: 20070423
  Receipt Date: 20070410
  Transmission Date: 20071010
  Serious: Yes (Hospitalization, Other)
  Sender: FDA-Public Use
  Company Number: PHMT2006CA01528

PATIENT
  Age: 78 Year
  Sex: Male

DRUGS (2)
  1. SANDOSTATIN LAR [Suspect]
     Indication: CARCINOID SYNDROME
     Dosage: 40 MG, QMO
     Dates: start: 20030401
  2. SANDOSTATIN LAR [Suspect]
     Dosage: 60 MG
     Route: 030
     Dates: start: 20070101

REACTIONS (10)
  - BLOOD PRESSURE INCREASED [None]
  - DIARRHOEA [None]
  - DISEASE PROGRESSION [None]
  - FATIGUE [None]
  - FLUSHING [None]
  - HEPATIC NEOPLASM [None]
  - HORMONE LEVEL ABNORMAL [None]
  - MALAISE [None]
  - THERAPEUTIC EMBOLISATION [None]
  - WEIGHT DECREASED [None]
